FAERS Safety Report 8960835 (Version 3)
Quarter: 2013Q1

REPORT INFORMATION
  Report Type: Spontaneous
  Country: DE (occurrence: DE)
  Receive Date: 20121213
  Receipt Date: 20130211
  Transmission Date: 20140127
  Serious: Yes (Hospitalization)
  Sender: FDA-Public Use
  Company Number: DE-AMGEN-DEUSP2012079986

PATIENT
  Age: 56 Year
  Sex: Male
  Weight: 100 kg

DRUGS (2)
  1. ENBREL [Suspect]
     Indication: PSORIASIS
     Dosage: 50 MG, WEEKLY
     Route: 058
     Dates: start: 20090918
  2. PREDNI [Concomitant]
     Indication: INTESTINAL POLYP
     Dosage: 2.5-5 MG, DAILY
     Route: 048
     Dates: start: 201208

REACTIONS (3)
  - Transient ischaemic attack [Recovered/Resolved]
  - Hemiparesis [Unknown]
  - Liver function test abnormal [Recovered/Resolved]
